FAERS Safety Report 6019691-7 (Version None)
Quarter: 2008Q4

REPORT INFORMATION
  Report Type: 
  Country: None (occurrence: None)
  Receive Date: 20081224
  Receipt Date: 20081211
  Transmission Date: 20090506
  Serious: Yes (Other)
  Sender: FDA-Public Use
  Company Number: DE-GENENTECH-274105

PATIENT
  Age: 77 Year
  Sex: Female

DRUGS (5)
  1. ACTIVASE [Suspect]
     Indication: RETINAL HAEMORRHAGE
     Dosage: 50 A?G, UNK
     Route: 031
  2. AVASTIN [Suspect]
     Indication: RETINAL HAEMORRHAGE
     Route: 031
  3. SULFUR HEXAFLUORIDE GAS [Suspect]
     Indication: RETINAL HAEMORRHAGE
     Dosage: UNK ML, UNK
     Route: 031
  4. ASPIRIN [Concomitant]
     Indication: ANTICOAGULANT THERAPY
  5. CHLORAMPHENICOL EYE OINTMENT [Concomitant]
     Indication: DRUG USE FOR UNKNOWN INDICATION

REACTIONS (1)
  - INTRAOCULAR PRESSURE INCREASED [None]
